FAERS Safety Report 15228083 (Version 5)
Quarter: 2023Q2

REPORT INFORMATION
  Report Type: Spontaneous
  Country: BG (occurrence: BG)
  Receive Date: 20180801
  Receipt Date: 20230508
  Transmission Date: 20230722
  Serious: Yes (Life-Threatening, Hospitalization, Other)
  Sender: FDA-Public Use
  Company Number: BG-MLMSERVICE-20180713-1277657-1

PATIENT
  Age: 45 Year
  Sex: Male

DRUGS (2)
  1. ASPIRIN [Suspect]
     Active Substance: ASPIRIN
     Indication: Hypertension
     Dosage: 100 MG, HS (ONCE DAILY AT NIGHT)
     Dates: start: 20180414
  2. HYDROCHLOROTHIAZIDE\IRBESARTAN [Suspect]
     Active Substance: HYDROCHLOROTHIAZIDE\IRBESARTAN
     Indication: Hypertension
     Dosage: IRBESARTAN/HYDROCHLOROTHIAZIDE 150 MG/12.5 MG (1-0-0).
     Dates: start: 20180414

REACTIONS (7)
  - Malignant melanoma [Recovered/Resolved]
  - Malignant melanoma stage I [Recovering/Resolving]
  - Psoriasis [Unknown]
  - Papule [Unknown]
  - Fungal infection [Unknown]
  - Macular pigmentation [Unknown]
  - Periodontitis [Unknown]

NARRATIVE: CASE EVENT DATE: 20180101
